FAERS Safety Report 9641766 (Version 1)
Quarter: 2013Q4

REPORT INFORMATION
  Report Type: Spontaneous
  Country: FR (occurrence: None)
  Receive Date: 20131021
  Receipt Date: 20131021
  Transmission Date: 20140711
  Serious: Yes (Other)
  Sender: FDA-Public Use
  Company Number: 223894

PATIENT
  Age: 39 Year
  Sex: Female

DRUGS (1)
  1. DAIVOBET [Suspect]
     Indication: DERMATITIS ATOPIC
     Route: 061
     Dates: start: 201308, end: 20130826

REACTIONS (2)
  - Application site inflammation [None]
  - Application site pruritus [None]
